FAERS Safety Report 7829761-6 (Version None)
Quarter: 2011Q4

REPORT INFORMATION
  Report Type: 
  Country: None (occurrence: None)
  Receive Date: 20111021
  Receipt Date: 20111012
  Transmission Date: 20120403
  Serious: Yes (Other)
  Sender: FDA-Public Use
  Company Number: NL-JNJFOC-20111004904

PATIENT
  Age: 9 Year
  Sex: Male

DRUGS (2)
  1. VENTOLIN [Concomitant]
     Indication: ASTHMA
     Route: 065
  2. RISPERDAL [Suspect]
     Indication: PRODUCT USED FOR UNKNOWN INDICATION
     Dosage: DOSAGE AND FREQUENCY UNSPECIFIED
     Route: 065

REACTIONS (1)
  - ASTHMA [None]
